FAERS Safety Report 21120250 (Version 2)
Quarter: 2022Q3

REPORT INFORMATION
  Report Type: Spontaneous
  Country: DE (occurrence: DE)
  Receive Date: 20220722
  Receipt Date: 20220909
  Transmission Date: 20221026
  Serious: Yes (Other)
  Sender: FDA-Public Use
  Company Number: DE-002147023-NVSC2022DE156387

PATIENT
  Age: 34 Year
  Sex: Male

DRUGS (12)
  1. MOXIFLOXACIN [Suspect]
     Active Substance: MOXIFLOXACIN
     Indication: Tuberculosis
     Dosage: 1600 MILLIGRAM
     Route: 065
  2. MOXIFLOXACIN [Suspect]
     Active Substance: MOXIFLOXACIN
     Dosage: 800 MILLIGRAM, QD
     Route: 065
  3. AMOXICILLIN\CLAVULANIC ACID [Suspect]
     Active Substance: AMOXICILLIN\CLAVULANIC ACID
     Indication: Tuberculosis
     Dosage: 7.2 GRAM, QD
     Route: 065
  4. AMOXICILLIN\CLAVULANIC ACID [Suspect]
     Active Substance: AMOXICILLIN\CLAVULANIC ACID
     Dosage: UNK, (STANDARD DOSE)
     Route: 065
  5. TERIZIDONE [Suspect]
     Active Substance: TERIZIDONE
     Indication: Tuberculosis
     Dosage: UNK, (STANDARD DOSE)
     Route: 065
  6. TERIZIDONE [Suspect]
     Active Substance: TERIZIDONE
     Dosage: 1000 MILLIGRAM
     Route: 065
  7. BEDAQUILINE [Suspect]
     Active Substance: BEDAQUILINE
     Indication: Tuberculosis
     Dosage: UNK UNK, Q21D
     Route: 065
  8. BEDAQUILINE [Suspect]
     Active Substance: BEDAQUILINE
     Dosage: 300 MG, TIW
     Route: 065
  9. BEDAQUILINE [Suspect]
     Active Substance: BEDAQUILINE
     Dosage: 400 MG, TIW
     Route: 065
  10. DELAMANID [Suspect]
     Active Substance: DELAMANID
     Indication: Tuberculosis
     Dosage: UNK, (STANDARD DOSE)
     Route: 065
  11. MEROPENEM [Suspect]
     Active Substance: MEROPENEM
     Indication: Tuberculosis
     Dosage: 9.6 GRAM, QD
     Route: 065
  12. MEROPENEM [Suspect]
     Active Substance: MEROPENEM
     Dosage: UNK, (STANDARD DOSE)
     Route: 065

REACTIONS (3)
  - Drug ineffective [Recovered/Resolved]
  - Off label use [Unknown]
  - Product use in unapproved indication [Unknown]
